FAERS Safety Report 23369461 (Version 2)
Quarter: 2024Q1

REPORT INFORMATION
  Report Type: Spontaneous
  Country: SG (occurrence: SG)
  Receive Date: 20240105
  Receipt Date: 20240302
  Transmission Date: 20240410
  Serious: Yes (Life-Threatening, Hospitalization)
  Sender: FDA-Public Use
  Company Number: SG-TEVA-VS-3138007

PATIENT
  Age: 60 Year
  Sex: Female

DRUGS (8)
  1. METFORMIN [Suspect]
     Active Substance: METFORMIN HYDROCHLORIDE
     Indication: Diabetes mellitus
     Route: 065
  2. ATORVASTATIN [Concomitant]
     Active Substance: ATORVASTATIN
     Indication: Dyslipidaemia
     Route: 065
  3. IRON [Concomitant]
     Active Substance: IRON
     Indication: Product used for unknown indication
     Route: 065
  4. BISOPROLOL [Concomitant]
     Active Substance: BISOPROLOL\BISOPROLOL FUMARATE
     Indication: Hypertension
     Route: 065
  5. AMLODIPINE [Concomitant]
     Active Substance: AMLODIPINE BESYLATE
     Indication: Hypertension
     Route: 065
  6. FENOFIBRATE [Suspect]
     Active Substance: FENOFIBRATE
     Indication: Dyslipidaemia
     Route: 065
  7. NOREPINEPHRINE [Suspect]
     Active Substance: NOREPINEPHRINE\NOREPINEPHRINE BITARTRATE
     Indication: Hypotension
     Route: 042
  8. LINAGLIPTIN [Suspect]
     Active Substance: LINAGLIPTIN
     Indication: Diabetes mellitus
     Route: 065

REACTIONS (6)
  - Pancreatitis haemorrhagic [Recovering/Resolving]
  - Metabolic acidosis [Recovering/Resolving]
  - Drug ineffective [Unknown]
  - Toxicity to various agents [Recovering/Resolving]
  - Septic shock [Recovering/Resolving]
  - Hypotension [Recovering/Resolving]
